FAERS Safety Report 11179678 (Version 1)
Quarter: 2015Q2

REPORT INFORMATION
  Report Type: Spontaneous
  Country: US (occurrence: None)
  Receive Date: 20150609
  Receipt Date: 20150609
  Transmission Date: 20150821
  Serious: Yes (Other)
  Sender: FDA-Public Use
  Company Number: None

PATIENT
  Age: 46 Year
  Sex: Male

DRUGS (4)
  1. BENAZEPRIL [Suspect]
     Active Substance: BENAZEPRIL\BENAZEPRIL HYDROCHLORIDE
     Indication: HYPERTENSION
     Dosage: 1 YEARS AGO
  2. LOVASTATIN. [Concomitant]
     Active Substance: LOVASTATIN
  3. IRBESARTAN. [Suspect]
     Active Substance: IRBESARTAN
     Indication: HYPERTENSION
     Dosage: THERAPY ?3 YEARS AGO
  4. AVAPRO [Concomitant]
     Active Substance: IRBESARTAN

REACTIONS (3)
  - Product substitution issue [None]
  - Drug ineffective [None]
  - Cough [None]
